FAERS Safety Report 17684793 (Version 3)
Quarter: 2021Q4

REPORT INFORMATION
  Report Type: Spontaneous
  Country: CA (occurrence: CA)
  Receive Date: 20200420
  Receipt Date: 20211216
  Transmission Date: 20220303
  Serious: Yes (Hospitalization, Other)
  Sender: FDA-Public Use
  Company Number: CA-SAMSUNG BIOEPIS-SB-2020-13438

PATIENT
  Age: 66 Year
  Sex: Male
  Weight: 99 kg

DRUGS (7)
  1. INFLIXIMAB [Suspect]
     Active Substance: INFLIXIMAB
     Indication: Crohn^s disease
     Route: 042
  2. CIPROFLOXACIN HYDROCHLORIDE [Concomitant]
     Active Substance: CIPROFLOXACIN HYDROCHLORIDE
     Indication: Protein urine
     Dosage: UNKNOWN
     Route: 065
  3. IMURAN [Concomitant]
     Active Substance: AZATHIOPRINE
     Indication: Product used for unknown indication
     Dosage: UNKNOWN
     Route: 065
  4. IMURAN [Concomitant]
     Active Substance: AZATHIOPRINE
     Route: 065
  5. PREDNISONE [Concomitant]
     Active Substance: PREDNISONE
     Indication: Product used for unknown indication
     Dosage: UNKNOWN
     Route: 065
  6. PREDNISONE [Concomitant]
     Active Substance: PREDNISONE
     Route: 065
  7. INSULIN NOS [Concomitant]
     Active Substance: INSULIN NOS
     Indication: Diabetes mellitus
     Dosage: GLOBULES ORAL
     Route: 065

REACTIONS (16)
  - Ankylosing spondylitis [Not Recovered/Not Resolved]
  - Catheter site pain [Not Recovered/Not Resolved]
  - Condition aggravated [Not Recovered/Not Resolved]
  - Constipation [Not Recovered/Not Resolved]
  - Defaecation urgency [Not Recovered/Not Resolved]
  - Fall [Not Recovered/Not Resolved]
  - Headache [Recovered/Resolved]
  - Hypersomnia [Not Recovered/Not Resolved]
  - Nausea [Not Recovered/Not Resolved]
  - Penile pain [Not Recovered/Not Resolved]
  - Protein urine present [Not Recovered/Not Resolved]
  - Proteinuria [Not Recovered/Not Resolved]
  - Rib fracture [Not Recovered/Not Resolved]
  - Traumatic lung injury [Not Recovered/Not Resolved]
  - Urinary tract infection [Not Recovered/Not Resolved]
  - Weight increased [Not Recovered/Not Resolved]
